FAERS Safety Report 15589685 (Version 1)
Quarter: 2018Q4

REPORT INFORMATION
  Report Type: Spontaneous
  Country: FR (occurrence: FR)
  Receive Date: 20181106
  Receipt Date: 20181106
  Transmission Date: 20190205
  Serious: Yes (Other)
  Sender: FDA-Public Use
  Company Number: FR-ACCORD-091187

PATIENT
  Age: 57 Year
  Sex: Female

DRUGS (3)
  1. ENBREL [Suspect]
     Active Substance: ETANERCEPT
     Indication: RHEUMATIC DISORDER
     Dosage: NOT COMMUNICATED
     Route: 058
     Dates: start: 2005, end: 2015
  2. METHOTREXATE. [Suspect]
     Active Substance: METHOTREXATE
     Indication: RHEUMATIC DISORDER
     Dosage: NOT COMMUNICATED
     Route: 048
     Dates: start: 2011
  3. INDOCID [Suspect]
     Active Substance: INDOMETHACIN
     Indication: RHEUMATIC DISORDER
     Dosage: NOT COMMUNICATED
     Route: 048
     Dates: start: 2011, end: 2016

REACTIONS (1)
  - Congestive cardiomyopathy [Not Recovered/Not Resolved]

NARRATIVE: CASE EVENT DATE: 2016
